FAERS Safety Report 10345226 (Version 2)
Quarter: 2015Q1

REPORT INFORMATION
  Report Type: Spontaneous
  Country: US (occurrence: US)
  Receive Date: 20140728
  Receipt Date: 20150323
  Transmission Date: 20150720
  Serious: Yes (Death, Hospitalization, Other)
  Sender: FDA-Public Use
  Company Number: US-009507513-1407USA011895

PATIENT
  Sex: Female
  Weight: 82.99 kg

DRUGS (2)
  1. JANUVIA [Suspect]
     Active Substance: SITAGLIPTIN PHOSPHATE
     Dosage: 50 MG, QD
     Route: 048
     Dates: start: 20120105, end: 20120912
  2. JANUVIA [Suspect]
     Active Substance: SITAGLIPTIN PHOSPHATE
     Indication: TYPE 2 DIABETES MELLITUS
     Dosage: 100MG, QD
     Route: 048
     Dates: start: 20100420

REACTIONS (10)
  - Adenocarcinoma pancreas [Unknown]
  - Dyspepsia [Unknown]
  - Death [Fatal]
  - Diabetic nephropathy [Unknown]
  - Anxiety [Unknown]
  - Bile duct stenosis [Unknown]
  - Renal cyst [Unknown]
  - Transaminases increased [Unknown]
  - Abdominal pain [Recovered/Resolved]
  - Agitation [Unknown]

NARRATIVE: CASE EVENT DATE: 20121123
